FAERS Safety Report 13679751 (Version 1)
Quarter: 2017Q2

REPORT INFORMATION
  Report Type: Spontaneous
  Country: FR (occurrence: FR)
  Receive Date: 20170622
  Receipt Date: 20170622
  Transmission Date: 20170830
  Serious: Yes (Hospitalization, Other)
  Sender: FDA-Public Use
  Company Number: FR-MYLANLABS-2017M1035891

PATIENT

DRUGS (7)
  1. FLUCONAZOLE. [Suspect]
     Active Substance: FLUCONAZOLE
     Indication: PRODUCT USED FOR UNKNOWN INDICATION
     Dosage: UNK
     Route: 048
     Dates: start: 20170511, end: 20170515
  2. OXYNORM [Concomitant]
     Active Substance: OXYCODONE HYDROCHLORIDE
     Indication: PRODUCT USED FOR UNKNOWN INDICATION
     Dosage: UNK
     Dates: start: 20170511, end: 20170515
  3. PIPERACILLIN [Concomitant]
     Active Substance: PIPERACILLIN
     Indication: ANTIBIOTIC THERAPY
     Dosage: UNK
     Dates: start: 20170504, end: 20170510
  4. OXYNORM [Concomitant]
     Active Substance: OXYCODONE HYDROCHLORIDE
     Dosage: UNK
  5. PIPERACILLIN [Concomitant]
     Active Substance: PIPERACILLIN
     Dosage: UNK
     Dates: start: 20170512
  6. PIPERACILLIN [Suspect]
     Active Substance: PIPERACILLIN
     Indication: PRODUCT USED FOR UNKNOWN INDICATION
     Dosage: UNK
     Route: 042
     Dates: start: 20170510, end: 20170516
  7. PIPERACILLIN,TAZOBACTAM MYLAN [Suspect]
     Active Substance: PIPERACILLIN SODIUM\TAZOBACTAM SODIUM
     Indication: PRODUCT USED FOR UNKNOWN INDICATION
     Dosage: UNK
     Route: 042
     Dates: start: 20170515, end: 20170515

REACTIONS (2)
  - Angioedema [Recovered/Resolved]
  - Drug administration error [Recovered/Resolved]

NARRATIVE: CASE EVENT DATE: 20170515
